FAERS Safety Report 8387671-2 (Version None)
Quarter: 2012Q2

REPORT INFORMATION
  Report Type: 
  Country: None (occurrence: None)
  Receive Date: 20120525
  Receipt Date: 20120521
  Transmission Date: 20120825
  Serious: No
  Sender: FDA-Public Use
  Company Number: US-PFIZER INC-2012123663

PATIENT
  Sex: Male
  Weight: 79 kg

DRUGS (2)
  1. NICOTROL [Suspect]
     Indication: SMOKING CESSATION THERAPY
     Dosage: 10MG CARTRIDGE FIVE PUFFS FIVE TIMES A DAY
     Route: 055
     Dates: start: 20120508
  2. LISINOPRIL [Concomitant]
     Indication: HYPERTENSION
     Dosage: 12.5 MG, DAILY

REACTIONS (2)
  - THROAT IRRITATION [None]
  - COUGH [None]
